FAERS Safety Report 9465273 (Version 2)
Quarter: 2013Q3

REPORT INFORMATION
  Report Type: Spontaneous
  Country: PH (occurrence: PH)
  Receive Date: 20130819
  Receipt Date: 20130823
  Transmission Date: 20140515
  Serious: Yes (Death)
  Sender: FDA-Public Use
  Company Number: PH-MERCK-1308PHL007056

PATIENT
  Age: 61 Year
  Sex: Male

DRUGS (2)
  1. JANUVIA [Suspect]
     Dosage: 1 DF, QD
     Route: 048
  2. LOSARTAN POTASSIUM [Concomitant]

REACTIONS (8)
  - Death [Fatal]
  - Dialysis [Fatal]
  - Pallor [Unknown]
  - Feeling cold [Unknown]
  - Tremor [Unknown]
  - Hypotension [Recovered/Resolved]
  - Blood pressure systolic increased [Unknown]
  - Lip haemorrhage [Unknown]
